FAERS Safety Report 11706731 (Version 1)
Quarter: 2015Q4

REPORT INFORMATION
  Report Type: Spontaneous
  Country: US (occurrence: US)
  Receive Date: 20151104
  Receipt Date: 20151104
  Transmission Date: 20160304
  Serious: No
  Sender: FDA-Public Use
  Company Number: US-ELI_LILLY_AND_COMPANY-US201012005053

PATIENT
  Sex: Female

DRUGS (3)
  1. FORTEO [Suspect]
     Active Substance: TERIPARATIDE
     Indication: OSTEOPOROSIS
     Dosage: 20 UG, DAILY (1/D)
     Route: 065
     Dates: start: 20091002
  2. CALTRATE /00108001/ [Concomitant]
     Indication: MINERAL SUPPLEMENTATION
     Dosage: UNK, 2/D
  3. CALTRATE /00108001/ [Concomitant]
     Dosage: UNK, DAILY (1/D)

REACTIONS (3)
  - Urinary tract infection [Unknown]
  - Blood calcium increased [Unknown]
  - Nephrolithiasis [Unknown]
